FAERS Safety Report 15900987 (Version 1)
Quarter: 2019Q1

REPORT INFORMATION
  Report Type: Spontaneous
  Country: US (occurrence: US)
  Receive Date: 20190109
  Receipt Date: 20190109
  Transmission Date: 20190417
  Serious: No
  Sender: FDA-Public Use
  Company Number: None

PATIENT
  Age: 76 Year
  Sex: Male
  Weight: 93 kg

DRUGS (1)
  1. WARFARIN [Suspect]
     Active Substance: WARFARIN
     Route: 048
     Dates: start: 20180718, end: 20181119

REACTIONS (6)
  - Epistaxis [None]
  - Back pain [None]
  - International normalised ratio abnormal [None]
  - Arthralgia [None]
  - Contusion [None]
  - Asthenia [None]

NARRATIVE: CASE EVENT DATE: 20181119
